FAERS Safety Report 11190465 (Version 4)
Quarter: 2015Q3

REPORT INFORMATION
  Report Type: Report from Study
  Country: CO (occurrence: CO)
  Receive Date: 20150615
  Receipt Date: 20150827
  Transmission Date: 20151125
  Serious: Yes (Hospitalization, Other)
  Sender: FDA-Public Use
  Company Number: CO-AMGEN-COLSL2015057304

PATIENT
  Age: 39 Year
  Sex: Female

DRUGS (1)
  1. NPLATE [Suspect]
     Active Substance: ROMIPLOSTIM
     Indication: IMMUNE THROMBOCYTOPENIC PURPURA
     Dosage: 250 MUG, QWK
     Route: 058
     Dates: start: 20150605

REACTIONS (11)
  - Pregnancy [Not Recovered/Not Resolved]
  - Abortion spontaneous [Recovered/Resolved]
  - Platelet count abnormal [Unknown]
  - Renal pain [Recovered/Resolved]
  - Transfusion [Unknown]
  - Chest pain [Recovered/Resolved]
  - Vaginal haemorrhage [Not Recovered/Not Resolved]
  - Spinal pain [Recovered/Resolved]
  - Burning sensation [Recovered/Resolved]
  - Intentional product misuse [Recovering/Resolving]
  - Headache [Recovered/Resolved]

NARRATIVE: CASE EVENT DATE: 20150605
